FAERS Safety Report 10218539 (Version 4)
Quarter: 2015Q1

REPORT INFORMATION
  Report Type: Spontaneous
  Country: US (occurrence: US)
  Receive Date: 20140605
  Receipt Date: 20150113
  Transmission Date: 20150720
  Serious: Yes (Death, Life-Threatening, Hospitalization, Other)
  Sender: FDA-Public Use
  Company Number: US-009507513-1406USA002151

PATIENT
  Sex: Male
  Weight: 81.63 kg

DRUGS (5)
  1. BYETTA [Suspect]
     Active Substance: EXENATIDE
     Dosage: 10 MICROGRAM, BID
     Dates: start: 20100119, end: 20110331
  2. JANUMET [Suspect]
     Active Substance: METFORMIN HYDROCHLORIDE\SITAGLIPTIN PHOSPHATE
     Indication: TYPE 2 DIABETES MELLITUS
     Dosage: 50-1000 MG, BID
     Route: 048
     Dates: start: 20071214, end: 20080701
  3. JANUMET [Suspect]
     Active Substance: METFORMIN HYDROCHLORIDE\SITAGLIPTIN PHOSPHATE
     Dosage: 50-1000 MG, BID
     Route: 048
     Dates: start: 20080906, end: 20081205
  4. BYETTA [Suspect]
     Active Substance: EXENATIDE
     Dosage: 5 MICROGRAM, BID
     Dates: start: 20091015, end: 20100106
  5. JANUMET [Suspect]
     Active Substance: METFORMIN HYDROCHLORIDE\SITAGLIPTIN PHOSPHATE
     Dosage: 50 MG, BID
     Route: 048
     Dates: start: 20100420, end: 20110413

REACTIONS (34)
  - Nephrogenic anaemia [Unknown]
  - Cataract [Unknown]
  - Coagulopathy [Recovered/Resolved]
  - Renal injury [Recovered/Resolved]
  - Dehydration [Recovered/Resolved]
  - Drug hypersensitivity [Unknown]
  - Aneurysm [Unknown]
  - Dehydration [Recovering/Resolving]
  - Enteritis [Unknown]
  - Oedema peripheral [Unknown]
  - Upper respiratory tract congestion [Unknown]
  - Pancreatic carcinoma [Fatal]
  - Pancreatitis [Unknown]
  - Nephrolithiasis [Unknown]
  - Peripheral artery aneurysm [Unknown]
  - Dyspnoea [Unknown]
  - Drug ineffective [Unknown]
  - Renal cyst [Unknown]
  - Type 1 diabetes mellitus [Unknown]
  - Diarrhoea [Recovering/Resolving]
  - Peripheral vascular disorder [Unknown]
  - Central venous catheterisation [Unknown]
  - Metastases to liver [Unknown]
  - Dyspnoea [Recovering/Resolving]
  - Disease progression [Unknown]
  - Cardiomegaly [Unknown]
  - Chronic kidney disease [Not Recovered/Not Resolved]
  - Renal impairment [Recovering/Resolving]
  - Hepatic lesion [Unknown]
  - Goitre [Unknown]
  - Diverticulitis [Unknown]
  - Coronary artery disease [Unknown]
  - Deep vein thrombosis [Unknown]
  - Lithotripsy [Unknown]

NARRATIVE: CASE EVENT DATE: 2008
